FAERS Safety Report 4755601-8 (Version None)
Quarter: 2005Q3

REPORT INFORMATION
  Report Type: 
  Country: None (occurrence: None)
  Receive Date: 20050830
  Receipt Date: 20050526
  Transmission Date: 20060218
  Serious: No
  Sender: FDA-Public Use
  Company Number: US-BRISTOL-MYERS SQUIBB COMPANY-12984183

PATIENT
  Age: 21 Year
  Sex: Male
  Weight: 56 kg

DRUGS (3)
  1. ABILIFY [Suspect]
     Dates: start: 20041001
  2. DEPAKOTE [Concomitant]
  3. SYNTHROID [Concomitant]

REACTIONS (3)
  - INSOMNIA [None]
  - PSYCHOMOTOR HYPERACTIVITY [None]
  - WEIGHT DECREASED [None]
